FAERS Safety Report 16578124 (Version 2)
Quarter: 2019Q3

REPORT INFORMATION
  Report Type: Report from Study
  Country: US (occurrence: US)
  Receive Date: 20190716
  Receipt Date: 20190722
  Transmission Date: 20191004
  Serious: Yes (Hospitalization, Other)
  Sender: FDA-Public Use
  Company Number: PHEH2019US029504

PATIENT
  Age: 78 Year
  Sex: Male

DRUGS (1)
  1. ENTRESTO [Suspect]
     Active Substance: SACUBITRIL\VALSARTAN
     Indication: CARDIAC FAILURE
     Dosage: 1 DF (24 MG OF SACUBITRIL AND 26 MG OF VALSARTAN), BID
     Route: 048
     Dates: start: 20190610, end: 20190711

REACTIONS (10)
  - Joint swelling [Unknown]
  - Peripheral swelling [Unknown]
  - Hallucination [Unknown]
  - Confusional state [Unknown]
  - Fatigue [Unknown]
  - Panic attack [Unknown]
  - Cough [Unknown]
  - Weight decreased [Unknown]
  - Dyspnoea [Unknown]
  - Amnesia [Unknown]

NARRATIVE: CASE EVENT DATE: 20190711
